FAERS Safety Report 7380624-2 (Version None)
Quarter: 2011Q1

REPORT INFORMATION
  Report Type: 
  Country: None (occurrence: None)
  Receive Date: 20110329
  Receipt Date: 20110322
  Transmission Date: 20110831
  Serious: Yes (Life-Threatening, Hospitalization)
  Sender: FDA-Public Use
  Company Number: GB-PFIZER INC-2011045262

PATIENT
  Age: 36 Year
  Sex: Male
  Weight: 94 kg

DRUGS (5)
  1. PREDNISOLONE [Concomitant]
     Indication: PSORIATIC ARTHROPATHY
     Dosage: 20 MG, UNK
     Route: 048
     Dates: start: 20110120, end: 20110130
  2. TRIAMCINOLONE ACETONIDE [Concomitant]
     Indication: ARTHRALGIA
     Dosage: UNK
     Route: 014
     Dates: start: 20110117, end: 20110117
  3. SULFASALAZINE [Suspect]
     Indication: PSORIATIC ARTHROPATHY
     Dosage: 1 G, 1X/DAY
     Route: 048
     Dates: start: 20110114, end: 20110208
  4. ETORICOXIB [Concomitant]
     Indication: PSORIATIC ARTHROPATHY
     Dosage: 90 MG, 1X/DAY
     Route: 048
     Dates: start: 20110112, end: 20110208
  5. OMEPRAZOLE [Concomitant]
     Indication: PROPHYLAXIS
     Dosage: 20 MG, UNK
     Route: 048
     Dates: start: 20110120, end: 20110130

REACTIONS (5)
  - SYNCOPE [None]
  - NEUTROPENIC SEPSIS [None]
  - RASH [None]
  - HEPATOTOXICITY [None]
  - OROPHARYNGEAL PAIN [None]
